FAERS Safety Report 5237948-4 (Version None)
Quarter: 2007Q1

REPORT INFORMATION
  Report Type: 
  Country: None (occurrence: None)
  Receive Date: 20070209
  Receipt Date: 20070201
  Transmission Date: 20070707
  Serious: Yes (Death)
  Sender: FDA-Public Use
  Company Number: AZAPH200700031

PATIENT
  Age: 54 Year
  Sex: Female

DRUGS (3)
  1. VIDAZA [Suspect]
     Indication: ACUTE MYELOID LEUKAEMIA
     Dosage: 50 MG/M2 (DAILY X 7 DAYS), SUBCUTANEOUS
     Route: 058
     Dates: start: 20061101
  2. NASEA (RAMOSETRON HYDROCHLORIDE) (INJECTION) [Concomitant]
  3. DEPAKOTE (VALPROATE SEMISODIUM) (500 MILLIGRAM, TABLETS) [Concomitant]

REACTIONS (5)
  - ANAEMIA [None]
  - ARRHYTHMIA [None]
  - ASTHENIA [None]
  - DISEASE PROGRESSION [None]
  - PLATELET COUNT DECREASED [None]
